FAERS Safety Report 5390130-2 (Version None)
Quarter: 2007Q3

REPORT INFORMATION
  Report Type: 
  Country: None (occurrence: None)
  Receive Date: 20070716
  Receipt Date: 20070716
  Transmission Date: 20080115
  Serious: Yes (Death, Life-Threatening, Hospitalization)
  Sender: FDA-Public Use
  Company Number: None

PATIENT
  Age: 85 Year
  Sex: Male

DRUGS (9)
  1. WARFARIN SODIUM [Suspect]
     Dosage: 5 MG DAILY PO
     Route: 048
  2. ASPIRIN [Suspect]
     Dosage: PO
     Route: 048
  3. RANITIDINE [Concomitant]
  4. POTASSIUM CHLORIDE [Concomitant]
  5. LOTENSIN [Concomitant]
  6. DIGOXIN [Concomitant]
  7. FUROSEMIDE [Concomitant]
  8. CASODEX [Concomitant]
  9. LIPITOR [Concomitant]

REACTIONS (4)
  - APHASIA [None]
  - COAGULOPATHY [None]
  - HAEMORRHAGE INTRACRANIAL [None]
  - MOVEMENT DISORDER [None]
